FAERS Safety Report 16828208 (Version 1)
Quarter: 2019Q3

REPORT INFORMATION
  Report Type: Spontaneous
  Country: US (occurrence: US)
  Receive Date: 20190730
  Receipt Date: 20190730
  Transmission Date: 20191005
  Serious: No
  Sender: FDA-Public Use
  Company Number: None

PATIENT
  Sex: Male

DRUGS (4)
  1. CLOMPHENE TAB [Concomitant]
  2. NOVAREL [Suspect]
     Active Substance: CHORIOGONADOTROPIN ALFA
     Indication: TESTICULAR FAILURE
     Dosage: ?          OTHER FREQUENCY:EVERY 3 DAYS;?
     Route: 041
     Dates: start: 20180510
  3. IBUPROFEN TAB [Concomitant]
  4. CEPHALEXIN CAP [Concomitant]

REACTIONS (2)
  - Intervertebral disc operation [None]
  - Therapy cessation [None]
